FAERS Safety Report 10003492 (Version 1)
Quarter: 2014Q1

REPORT INFORMATION
  Report Type: Spontaneous
  Country: US (occurrence: US)
  Receive Date: 20140312
  Receipt Date: 20140312
  Transmission Date: 20141002
  Serious: No
  Sender: FDA-Public Use
  Company Number: US-009507513-1403USA004826

PATIENT
  Sex: Female

DRUGS (1)
  1. ZETIA [Suspect]
     Indication: DRUG INTOLERANCE
     Dosage: 10 MG, QD(10MG,ONCE A DAY)
     Route: 048

REACTIONS (4)
  - Hypersensitivity [Recovering/Resolving]
  - Rash [Recovering/Resolving]
  - Pain [Recovering/Resolving]
  - Pruritus [Recovering/Resolving]
